FAERS Safety Report 5765301-3 (Version None)
Quarter: 2008Q2

REPORT INFORMATION
  Report Type: 
  Country: None (occurrence: None)
  Receive Date: 20080611
  Receipt Date: 20080603
  Transmission Date: 20081010
  Serious: Yes (Other)
  Sender: FDA-Public Use
  Company Number: US-BAYER-200812222BCC

PATIENT
  Age: 65 Year
  Sex: Female
  Weight: 78 kg

DRUGS (4)
  1. ONE A DAY WOMEN'S [Suspect]
     Indication: VITAMIN SUPPLEMENTATION
     Dosage: TOTAL DAILY DOSE: 1 DF  UNIT DOSE: 1 DF
     Route: 048
     Dates: start: 20070101, end: 20080603
  2. BAYER EXTRA STRENGTH ASPIRIN [Suspect]
     Indication: HEADACHE
     Dosage: UNIT DOSE: 500 MG
     Route: 048
  3. LOPRESSOR [Concomitant]
  4. BENADRYL [Concomitant]

REACTIONS (4)
  - DYSPHAGIA [None]
  - MUSCULOSKELETAL DISCOMFORT [None]
  - PARATHYROID TUMOUR MALIGNANT [None]
  - THYROID MASS [None]
